FAERS Safety Report 14458701 (Version 1)
Quarter: 2018Q1

REPORT INFORMATION
  Report Type: Spontaneous
  Country: DE (occurrence: DE)
  Receive Date: 20180130
  Receipt Date: 20180130
  Transmission Date: 20180509
  Serious: Yes (Hospitalization, Other)
  Sender: FDA-Public Use
  Company Number: DE-PFIZER INC-2018039894

PATIENT
  Age: 57 Year
  Sex: Male

DRUGS (10)
  1. ZYPREXA [Suspect]
     Active Substance: OLANZAPINE
     Dosage: 35 MG, 1X/DAY
     Dates: start: 20151114, end: 20151124
  2. ZYPREXA [Suspect]
     Active Substance: OLANZAPINE
     Dosage: 20 MG, 1X/DAY
     Dates: start: 201401
  3. ZYPREXA [Suspect]
     Active Substance: OLANZAPINE
     Dosage: 30 MG, 1X/DAY
     Dates: start: 201410, end: 20151030
  4. TAMSULOSIN [Concomitant]
     Active Substance: TAMSULOSIN
     Dosage: 0.4 MG, 1X/DAY
     Dates: start: 20151030
  5. RISPERDAL [Concomitant]
     Active Substance: RISPERIDONE
     Dosage: 6 MG, 1X/DAY
     Dates: start: 20151114
  6. ZYPREXA [Suspect]
     Active Substance: OLANZAPINE
     Dosage: 40 MG, 1X/DAY
     Dates: start: 20151107, end: 20151113
  7. SERTRALINE HCL [Suspect]
     Active Substance: SERTRALINE HYDROCHLORIDE
     Dosage: 100 MG, 1X/DAY
     Dates: start: 201410
  8. ZYPREXA [Suspect]
     Active Substance: OLANZAPINE
     Dosage: 35 MG, 1X/DAY
     Dates: start: 20151031, end: 20151106
  9. ZYPREXA [Suspect]
     Active Substance: OLANZAPINE
     Dosage: 30 MG, 1X/DAY
     Dates: start: 20151125
  10. RISPERDAL [Concomitant]
     Active Substance: RISPERIDONE
     Dosage: 5 MG, 1X/DAY
     Dates: start: 200804

REACTIONS (1)
  - Pollakiuria [Not Recovered/Not Resolved]

NARRATIVE: CASE EVENT DATE: 20171029
